FAERS Safety Report 10085207 (Version 2)
Quarter: 2014Q2

REPORT INFORMATION
  Report Type: Spontaneous
  Country: US (occurrence: US)
  Receive Date: 20140417
  Receipt Date: 20140417
  Transmission Date: 20141212
  Serious: No
  Sender: FDA-Public Use
  Company Number: US-GE HEALTHCARE MEDICAL DIAGNOSTICS-VISP-PR-1402S-0084

PATIENT
  Age: 57 Year
  Sex: Female
  Weight: 58.11 kg

DRUGS (11)
  1. VISIPAQUE [Suspect]
     Indication: ABDOMINAL PAIN
     Route: 042
     Dates: start: 20140225, end: 20140225
  2. VISIPAQUE [Suspect]
     Indication: DIAGNOSTIC PROCEDURE
  3. PROTONIX [Concomitant]
     Route: 048
     Dates: start: 20140224
  4. TORADOL [Concomitant]
     Route: 042
     Dates: start: 20140224
  5. MEGACE [Concomitant]
     Route: 048
  6. SEROQUEL [Concomitant]
     Route: 048
     Dates: start: 20140224
  7. MORPHINE [Concomitant]
     Route: 042
     Dates: start: 20140224
  8. ZOMETA [Concomitant]
     Route: 042
     Dates: start: 20140224
  9. MIRALAX [Concomitant]
     Route: 048
     Dates: start: 20140224
  10. ARIXTRA [Concomitant]
     Route: 058
     Dates: start: 20140224
  11. NORMAL SALINE [Concomitant]
     Route: 042
     Dates: start: 20140224

REACTIONS (2)
  - Hyperhidrosis [Recovered/Resolved]
  - Vomiting [Recovered/Resolved]
